FAERS Safety Report 10046768 (Version 2)
Quarter: 2014Q2

REPORT INFORMATION
  Report Type: Spontaneous
  Country: JP (occurrence: JP)
  Receive Date: 20140331
  Receipt Date: 20140408
  Transmission Date: 20141212
  Serious: Yes (Other)
  Sender: FDA-Public Use
  Company Number: PHHY2014JP038209

PATIENT
  Age: 77 Year
  Sex: Female

DRUGS (3)
  1. DICLOFENAC [Suspect]
     Indication: RHEUMATOID VASCULITIS
     Route: 054
  2. CELECOXIB [Suspect]
     Indication: RHEUMATOID VASCULITIS
     Route: 048
  3. ASPIRIN [Suspect]
     Indication: RHEUMATOID VASCULITIS

REACTIONS (3)
  - Amyloidosis [Unknown]
  - Gastrointestinal erosion [Unknown]
  - Small intestine ulcer [Unknown]
